FAERS Safety Report 13955948 (Version 1)
Quarter: 2017Q3

REPORT INFORMATION
  Report Type: Spontaneous
  Country: JP (occurrence: JP)
  Receive Date: 20170911
  Receipt Date: 20170911
  Transmission Date: 20171128
  Serious: Yes (Other)
  Sender: FDA-Public Use
  Company Number: JP-MYLANLABS-2017M1055138

PATIENT
  Age: 72 Year
  Sex: Female

DRUGS (2)
  1. PREDNISOLONE. [Suspect]
     Active Substance: PREDNISOLONE
     Indication: RHEUMATOID ARTHRITIS
     Dosage: 5 MG, QD
     Route: 065
  2. RIFAMPICIN [Suspect]
     Active Substance: RIFAMPIN
     Indication: COMPLICATION ASSOCIATED WITH DEVICE
     Route: 065

REACTIONS (5)
  - C-reactive protein increased [Unknown]
  - Malaise [Unknown]
  - Device related infection [Unknown]
  - Adrenal insufficiency [Recovering/Resolving]
  - Pyrexia [Unknown]
